FAERS Safety Report 8687007 (Version 2)
Quarter: 2013Q2

REPORT INFORMATION
  Report Type: Spontaneous
  Country: JP (occurrence: None)
  Receive Date: 20120711
  Receipt Date: 20130611
  Transmission Date: 20140414
  Serious: Yes (Other)
  Sender: FDA-Public Use
  Company Number: JP-2012-15682

PATIENT
  Age: 67 Year
  Sex: Male

DRUGS (13)
  1. SAMSCA [Suspect]
     Indication: FLUID RETENTION
     Dosage: 7.5 MG MILLIGRAM(S), QAM, ORAL,
     Route: 048
     Dates: start: 20120414, end: 20120414
  2. HANP (CARPERITIDE) INJECTION [Concomitant]
  3. DOPAMINE HYDROCHLORIDE [Concomitant]
  4. DOBUTAMINE (DOBUTAMINE HYDROCHLORIDE) INJECTION [Concomitant]
  5. MILRINONE (MILRINONE) INJECTION [Concomitant]
  6. ANCARON (AMIODARONE HYDROCHLORIDE) INJECTION [Concomitant]
  7. XYLOCAINE (LIDOCAINE) INJECTION [Concomitant]
  8. HEPARIN (HEPARIN SODIUM) [Concomitant]
  9. LASIX [Concomitant]
  10. ALDACTONE [Concomitant]
  11. MAINTATE (BISOPLOL FUMARATE) TABLET [Concomitant]
  12. COVERSYL (PERINDOPRIL ERBUMINE) TABLET [Concomitant]
  13. DIGOXIN [Concomitant]

REACTIONS (5)
  - HYPERNATRAEMIA [None]
  - SEPSIS [None]
  - FLUID RETENTION [None]
  - BLOOD PRESSURE DECREASED [None]
  - URINE OUTPUT DECREASED [None]
